FAERS Safety Report 22047726 (Version 1)
Quarter: 2023Q1

REPORT INFORMATION
  Report Type: Other
  Country: US (occurrence: None)
  Receive Date: 20230301
  Receipt Date: 20230301
  Transmission Date: 20230418
  Serious: Yes (Other)
  Sender: FDA-Public Use
  Company Number: US-ROCHE-3279733

PATIENT
  Age: 65 Year
  Sex: Female

DRUGS (1)
  1. GAVRETO [Suspect]
     Active Substance: PRALSETINIB
     Indication: Bronchial carcinoma
     Dosage: TAKE 4 CAPSULE(S) BY MOUTH EVERY DAY
     Route: 048

REACTIONS (7)
  - Fluid retention [Unknown]
  - Haemoglobin decreased [Unknown]
  - Headache [Unknown]
  - Dyspnoea [Unknown]
  - Pulmonary oedema [Unknown]
  - Peripheral swelling [Unknown]
  - Hypertension [Unknown]
